FAERS Safety Report 8345616-5 (Version None)
Quarter: 2012Q2

REPORT INFORMATION
  Report Type: 
  Country: None (occurrence: None)
  Receive Date: 20120508
  Receipt Date: 20111222
  Transmission Date: 20120825
  Serious: Yes (Hospitalization, Other)
  Sender: FDA-Public Use
  Company Number: JP-ROCHE-1065412

PATIENT
  Sex: Female
  Weight: 59 kg

DRUGS (34)
  1. ADVAIR DISKUS 100/50 [Concomitant]
  2. PROMETHAZINE HCL [Concomitant]
  3. NITRAZEPAM [Concomitant]
  4. PRIMPERAN (JAPAN) [Concomitant]
  5. IPD [Concomitant]
     Dates: start: 20110808
  6. PROTECADIN [Concomitant]
     Dates: start: 20110622
  7. OMALIZUMAB [Suspect]
     Indication: ASTHMA
     Route: 058
     Dates: start: 20100930
  8. CARBOPLATIN [Suspect]
     Route: 042
  9. SINGULAIR [Concomitant]
  10. UNIPHYL [Concomitant]
  11. MAGNESIUM SULFATE [Concomitant]
  12. CARBOPLATIN [Suspect]
     Indication: OVARIAN CANCER
     Route: 042
     Dates: start: 20101011, end: 20101221
  13. MEILAX [Concomitant]
  14. CLONAZEPAM [Concomitant]
  15. MUCOSTA [Concomitant]
  16. GRANISETRON [Concomitant]
     Dates: start: 20101001, end: 20101221
  17. OMALIZUMAB [Suspect]
     Route: 058
     Dates: start: 20101220
  18. HOKUNALIN [Concomitant]
     Dates: start: 20101120, end: 20101124
  19. THEO-DUR [Concomitant]
  20. MEPTIN [Concomitant]
  21. DEPAKENE [Concomitant]
  22. PROMAZINE HYDROCHLORIDE [Concomitant]
  23. OMALIZUMAB [Suspect]
     Route: 058
     Dates: start: 20110526
  24. PURSENNID [Concomitant]
  25. SHAKUYAKU-KANZO-TO [Concomitant]
  26. MS CONTIN [Concomitant]
  27. DECADRON [Concomitant]
     Dates: start: 20101001, end: 20101221
  28. OMALIZUMAB [Suspect]
     Route: 058
     Dates: start: 20101027
  29. OMALIZUMAB [Suspect]
     Route: 058
     Dates: start: 20110105
  30. DOXIL (ISRAEL) [Concomitant]
     Dates: start: 20110622, end: 20110819
  31. MEDROL [Concomitant]
  32. PACLITAXEL [Concomitant]
     Dates: start: 20101001, end: 20101221
  33. OMEPRAZOLE [Concomitant]
     Dates: start: 20110209
  34. SYMBICORT [Concomitant]
     Dates: start: 20110414

REACTIONS (14)
  - PRURITUS GENERALISED [None]
  - ANGIOEDEMA [None]
  - DYSPNOEA [None]
  - RESPIRATORY DISORDER [None]
  - HYPOTENSION [None]
  - SKIN SWELLING [None]
  - PNEUMONIA [None]
  - ERYTHEMA [None]
  - ASTHMA [None]
  - COUGH [None]
  - HYPOXIA [None]
  - ANAPHYLACTIC SHOCK [None]
  - SWELLING [None]
  - PRURITUS [None]
